FAERS Safety Report 7900997-9 (Version None)
Quarter: 2011Q4

REPORT INFORMATION
  Report Type: 
  Country: None (occurrence: None)
  Receive Date: 20111104
  Receipt Date: 20111027
  Transmission Date: 20120403
  Serious: Yes (Death)
  Sender: FDA-Public Use
  Company Number: AUR-APL-2011-05614

PATIENT
  Age: 65 Year
  Sex: Male

DRUGS (5)
  1. TEMAZEPAM 9TEMAZEPAM0 [Concomitant]
  2. GLICLAZIDE (GLICLAZIDE) [Concomitant]
  3. ATORVASTATIN CALCIUM [Concomitant]
  4. METFORMIN HCL [Suspect]
     Indication: PRODUCT USED FOR UNKNOWN INDICATION
     Dosage: 2550 MG (850 MG, 3 IN 1 D),
  5. OMEPRAZOLE [Suspect]
     Indication: PRODUCT USED FOR UNKNOWN INDICATION
     Dosage: 20 MG (20 MG, 1 IN 1 D),

REACTIONS (3)
  - LEG AMPUTATION [None]
  - PSYCHOTIC DISORDER [None]
  - EXSANGUINATION [None]
